FAERS Safety Report 8828128 (Version 1)
Quarter: 2012Q4

REPORT INFORMATION
  Report Type: 
  Country: US (occurrence: US)
  Receive Date: 20121005
  Receipt Date: 20121005
  Transmission Date: 20130627
  Serious: No
  Sender: FDA-Public Use
  Company Number: US-PFIZER INC-2012243585

PATIENT
  Age: 69 Year
  Sex: Male
  Weight: 105.67 kg

DRUGS (10)
  1. TIKOSYN [Suspect]
     Indication: ATRIAL FIBRILLATION
     Dosage: 500 ug, 2x/day
     Route: 048
     Dates: start: 201003, end: 201102
  2. TIKOSYN [Suspect]
     Dosage: 500 ug, 2x/day
     Route: 048
     Dates: start: 20120813
  3. TESTOSTERONE [Concomitant]
     Dosage: UNK
  4. COLACE [Concomitant]
     Dosage: UNK
  5. VASOTEC [Concomitant]
     Dosage: 5 mg, 1x/day
  6. TOPROL XL [Concomitant]
     Dosage: 50 mg, 2x/day
  7. LASIX [Concomitant]
     Dosage: 40 mg, 1x/day
  8. PEPCID [Concomitant]
     Dosage: 40 mg, 1x/day
  9. COUMADIN [Concomitant]
     Dosage: 10mg three times a week and 12.5mg four times a week alternatively
  10. PROSCAR [Concomitant]
     Dosage: 5 mg, UNK

REACTIONS (4)
  - Blood testosterone abnormal [Unknown]
  - Haemoglobin abnormal [Unknown]
  - Haematocrit abnormal [Unknown]
  - Blood disorder [Unknown]
